FAERS Safety Report 18164204 (Version 2)
Quarter: 2020Q3

REPORT INFORMATION
  Report Type: Report from Study
  Country: NO (occurrence: NO)
  Receive Date: 20200818
  Receipt Date: 20200902
  Transmission Date: 20201103
  Serious: Yes (Hospitalization)
  Sender: FDA-Public Use
  Company Number: NO-BRISTOL-MYERS SQUIBB COMPANY-BMS-2020-034757

PATIENT
  Age: 64 Year
  Sex: Female
  Weight: 54.9 kg

DRUGS (2)
  1. IPILIMUMAB [Suspect]
     Active Substance: IPILIMUMAB
     Indication: GASTRIC CANCER
     Dosage: 55 MILLIGRAM, Q6WK
     Route: 042
     Dates: start: 20200206, end: 20200206
  2. NIVOLUMAB [Suspect]
     Active Substance: NIVOLUMAB
     Indication: GASTRIC CANCER
     Dosage: 165 MILLIGRAM, Q2WK
     Route: 042
     Dates: start: 20200206, end: 20200206

REACTIONS (3)
  - Diarrhoea [Recovered/Resolved]
  - Dumping syndrome [Recovered/Resolved]
  - Colitis [Recovered/Resolved]

NARRATIVE: CASE EVENT DATE: 20200217
